FAERS Safety Report 19913130 (Version 1)
Quarter: 2021Q4

REPORT INFORMATION
  Report Type: Spontaneous
  Country: CN (occurrence: CN)
  Receive Date: 20211004
  Receipt Date: 20211004
  Transmission Date: 20220303
  Serious: Yes (Other)
  Sender: FDA-Public Use
  Company Number: CN-009507513-2109CHN007013

PATIENT
  Age: 53 Year
  Sex: Female

DRUGS (2)
  1. TEMODAL [Suspect]
     Active Substance: TEMOZOLOMIDE
     Indication: Chemotherapy
     Dosage: 200 MG, QD
     Route: 048
     Dates: start: 20210726, end: 20210731
  2. TEMODAL [Suspect]
     Active Substance: TEMOZOLOMIDE
     Dosage: 60 MG, QD
     Route: 048
     Dates: start: 20210726, end: 20210731

REACTIONS (1)
  - Drug-induced liver injury [Not Recovered/Not Resolved]

NARRATIVE: CASE EVENT DATE: 20210801
